FAERS Safety Report 9348912 (Version 2)
Quarter: 2013Q3

REPORT INFORMATION
  Report Type: Spontaneous
  Country: FR (occurrence: FR)
  Receive Date: 20130614
  Receipt Date: 20130703
  Transmission Date: 20140515
  Serious: Yes (Hospitalization)
  Sender: FDA-Public Use
  Company Number: FR-TEVA-412223ISR

PATIENT
  Age: 80 Year
  Sex: Male

DRUGS (2)
  1. FUROSEMIDE TEVA 40 MG [Suspect]
     Dosage: 120 MILLIGRAM DAILY;
  2. FUROSEMIDE TEVA 40 MG [Suspect]
     Dosage: 200 MILLIGRAM DAILY;

REACTIONS (1)
  - Cardiac failure [Recovering/Resolving]
